FAERS Safety Report 4610079-X (Version None)
Quarter: 2005Q1

REPORT INFORMATION
  Report Type: 
  Country: None (occurrence: None)
  Receive Date: 20050315
  Receipt Date: 20050301
  Transmission Date: 20050727
  Serious: Yes (Other)
  Sender: FDA-Public Use
  Company Number: GXKR2005FR00642

PATIENT
  Age: 77 Year
  Sex: Male
  Weight: 69 kg

DRUGS (4)
  1. AMOXICILLIN [Suspect]
     Indication: INFLUENZA
     Dosage: 2 G DAILY, ORAL
     Route: 048
     Dates: start: 20050116, end: 20050121
  2. OMEPRAZOLE [Concomitant]
  3. RHINATHIOL RHUME [Concomitant]
  4. IBUPROFEN AND PSEUDOEPHEDRINE HCL [Concomitant]

REACTIONS (4)
  - ECCHYMOSIS [None]
  - EPISTAXIS [None]
  - PETECHIAE [None]
  - THROMBOCYTOPENIC PURPURA [None]
